FAERS Safety Report 4446580-1 (Version None)
Quarter: 2004Q3

REPORT INFORMATION
  Report Type: 
  Country: None (occurrence: None)
  Receive Date: 20040908
  Receipt Date: 20040902
  Transmission Date: 20050211
  Serious: Yes (Death, Hospitalization)
  Sender: FDA-Public Use
  Company Number: 200419947BWH

PATIENT
  Age: 48 Year
  Sex: Male

DRUGS (2)
  1. TRASYLOL [Suspect]
     Indication: HEART TRANSPLANT
     Dosage: 200 ML, TOTAL DAILY, INTRAVENOUS
     Route: 042
     Dates: start: 20040721
  2. THYMOGLOBULIN [Suspect]
     Dates: start: 20040721

REACTIONS (7)
  - ANAPHYLACTOID REACTION [None]
  - BLOOD CULTURE POSITIVE [None]
  - LUNG INFECTION PSEUDOMONAL [None]
  - PHARMACEUTICAL PRODUCT COMPLAINT [None]
  - PNEUMONIA NECROTISING [None]
  - PROCEDURAL COMPLICATION [None]
  - TRANSFUSION REACTION [None]
